FAERS Safety Report 8978159 (Version 1)
Quarter: 2012Q4

REPORT INFORMATION
  Report Type: 
  Country: IT (occurrence: IT)
  Receive Date: 20121220
  Receipt Date: 20121220
  Transmission Date: 20130627
  Serious: Yes (Life-Threatening, Other)
  Sender: FDA-Public Use
  Company Number: PHHY2012IT117579

PATIENT
  Age: 37 Year
  Sex: Male

DRUGS (4)
  1. IRINOTECAN [Suspect]
     Indication: RECTAL CANCER
     Dosage: 230 mg (cyclic dose)
     Route: 042
     Dates: start: 20120720, end: 20121103
  2. FLUOROURACIL [Suspect]
     Indication: RECTAL CANCER
     Dosage: 3500 mg (cyclic dose)
     Route: 042
     Dates: start: 20120720, end: 20121103
  3. ERBITUX [Suspect]
     Indication: RECTAL CANCER
     Dosage: 850 mg cyclic dose
     Route: 042
     Dates: start: 20120720, end: 20121103
  4. EUTHYROX [Concomitant]
     Indication: AUTOIMMUNE THYROIDITIS

REACTIONS (2)
  - Diarrhoea [Recovered/Resolved]
  - Papule [Recovered/Resolved]
